FAERS Safety Report 16388082 (Version 2)
Quarter: 2019Q2

REPORT INFORMATION
  Report Type: Spontaneous
  Country: TR (occurrence: TR)
  Receive Date: 20190604
  Receipt Date: 20190617
  Transmission Date: 20190711
  Serious: Yes (Hospitalization, Other)
  Sender: FDA-Public Use
  Company Number: TR-AMGEN-TURSP2019087875

PATIENT
  Age: 58 Year
  Sex: Female
  Weight: 82 kg

DRUGS (3)
  1. PREDNOL [Concomitant]
     Dosage: 250 MG, IM, FOR 3 DAYS
     Route: 030
     Dates: start: 20190520
  2. CORTISONE [Concomitant]
     Active Substance: CORTISONE\HYDROCORTISONE
     Dosage: UNK
  3. ENBREL [Suspect]
     Active Substance: ETANERCEPT
     Indication: PRODUCT USED FOR UNKNOWN INDICATION
     Dosage: 50 MILLIGRAM, QWK
     Route: 058
     Dates: start: 20190527

REACTIONS (5)
  - Depressed level of consciousness [Not Recovered/Not Resolved]
  - Vomiting [Unknown]
  - Blood sodium decreased [Recovering/Resolving]
  - Seizure [Unknown]
  - Asthenia [Unknown]

NARRATIVE: CASE EVENT DATE: 20190527
